FAERS Safety Report 7881487 (Version 4)
Quarter: 2014Q2

REPORT INFORMATION
  Report Type: Spontaneous
  Country: US (occurrence: US)
  Receive Date: 20110401
  Receipt Date: 20140428
  Transmission Date: 20141212
  Serious: Yes (Hospitalization)
  Sender: FDA-Public Use
  Company Number: US-BAYER-2011-027851

PATIENT
  Age: 17 Year
  Sex: Female
  Weight: 84.35 kg

DRUGS (3)
  1. YAZ [Suspect]
     Indication: CONTRACEPTION
     Dosage: UNK
     Dates: start: 200809, end: 201009
  2. IBUPROFEN [Concomitant]
     Indication: PAIN
     Dosage: 750 MG, UNK
     Route: 048
     Dates: start: 201003, end: 201009
  3. IBUPROFEN [Concomitant]
     Indication: MUSCLE SPASMS

REACTIONS (10)
  - Gallbladder disorder [None]
  - Cholecystitis chronic [None]
  - Pain [None]
  - Dyspepsia [None]
  - Diarrhoea [None]
  - Injury [None]
  - General physical health deterioration [None]
  - Anxiety [None]
  - Anhedonia [None]
  - Emotional distress [None]
